FAERS Safety Report 5433203-8 (Version None)
Quarter: 2007Q3

REPORT INFORMATION
  Report Type: 
  Country: None (occurrence: None)
  Receive Date: 20070831
  Receipt Date: 20070824
  Transmission Date: 20080115
  Serious: Yes (Hospitalization, Other)
  Sender: FDA-Public Use
  Company Number: US-JNJFOC-20070805475

PATIENT
  Sex: Female
  Weight: 43.55 kg

DRUGS (7)
  1. REMICADE [Suspect]
     Route: 042
  2. REMICADE [Suspect]
     Route: 042
  3. REMICADE [Suspect]
     Indication: CROHN'S DISEASE
     Route: 042
  4. FLAGYL [Concomitant]
  5. PREDNISONE [Concomitant]
  6. PERCOCET [Concomitant]
  7. MORPHINE [Concomitant]
     Indication: ABDOMINAL PAIN

REACTIONS (11)
  - BACK PAIN [None]
  - BURNING SENSATION [None]
  - CHILLS [None]
  - CROHN'S DISEASE [None]
  - DYSPNOEA [None]
  - FEELING HOT [None]
  - INFUSION RELATED REACTION [None]
  - LOSS OF CONSCIOUSNESS [None]
  - RASH [None]
  - URTICARIA [None]
  - VOMITING [None]
